FAERS Safety Report 23965901 (Version 1)
Quarter: 2024Q2

REPORT INFORMATION
  Report Type: Report from Study
  Country: AU (occurrence: AU)
  Receive Date: 20240612
  Receipt Date: 20240612
  Transmission Date: 20240716
  Serious: Yes (Hospitalization, Other)
  Sender: FDA-Public Use
  Company Number: AU-JNJFOC-20240609639

PATIENT
  Age: 88 Year
  Sex: Female

DRUGS (3)
  1. BORTEZOMIB [Suspect]
     Active Substance: BORTEZOMIB
     Indication: Plasma cell myeloma
     Dosage: 1.7 MILLIGRAM
     Route: 065
     Dates: start: 20240213
  2. DEXAMETHASONE [Suspect]
     Active Substance: DEXAMETHASONE
     Indication: Plasma cell myeloma
     Dosage: 12 MILLIGRAM
     Route: 065
     Dates: start: 20230213, end: 20240502
  3. LENALIDOMIDE [Suspect]
     Active Substance: LENALIDOMIDE
     Indication: Plasma cell myeloma
     Dosage: 5 MILLIGRAM
     Route: 065
     Dates: start: 20230213, end: 20240502

REACTIONS (2)
  - Acute kidney injury [Recovered/Resolved]
  - Haemoglobin abnormal [Recovered/Resolved]

NARRATIVE: CASE EVENT DATE: 20240429
